FAERS Safety Report 4908823-7 (Version None)
Quarter: 2006Q1

REPORT INFORMATION
  Report Type: 
  Country: None (occurrence: None)
  Receive Date: 20060210
  Receipt Date: 20051130
  Transmission Date: 20060701
  Serious: No
  Sender: FDA-Public Use
  Company Number: US-GLAXOSMITHKLINE-A0584113A

PATIENT
  Age: 44 Year
  Sex: Female

DRUGS (2)
  1. PAXIL CR [Suspect]
     Indication: PANIC DISORDER
     Dosage: 50MG PER DAY
     Route: 048
     Dates: start: 20050701
  2. OXYCONTIN [Concomitant]

REACTIONS (3)
  - AMNESIA [None]
  - ANXIETY [None]
  - PANIC ATTACK [None]
